FAERS Safety Report 25076932 (Version 3)
Quarter: 2025Q2

REPORT INFORMATION
  Report Type: Spontaneous
  Country: JP (occurrence: JP)
  Receive Date: 20250314
  Receipt Date: 20250624
  Transmission Date: 20250716
  Serious: Yes (Other)
  Sender: BRISTOL-MYERS SQUIBB COMPANY
  Company Number: JP-BRISTOL-MYERS SQUIBB COMPANY-2024-174375

PATIENT
  Age: 83 Year
  Sex: Female

DRUGS (4)
  1. EMPLICITI [Suspect]
     Active Substance: ELOTUZUMAB
     Indication: Plasma cell myeloma
     Dates: start: 202405
  2. EMPLICITI [Suspect]
     Active Substance: ELOTUZUMAB
     Dates: start: 202406
  3. REVLIMID [Suspect]
     Active Substance: LENALIDOMIDE
     Indication: Plasma cell myeloma
     Dates: start: 202405
  4. REVLIMID [Suspect]
     Active Substance: LENALIDOMIDE
     Dates: start: 202406

REACTIONS (1)
  - Renal impairment [Unknown]
